FAERS Safety Report 8820104 (Version 2)
Quarter: 2012Q4

REPORT INFORMATION
  Report Type: 
  Country: BE (occurrence: BE)
  Receive Date: 20121001
  Receipt Date: 20121120
  Transmission Date: 20130627
  Serious: Yes (Hospitalization)
  Sender: FDA-Public Use
  Company Number: BE-VERTEX PHARMACEUTICAL INC.-2012-022137

PATIENT
  Age: 52 Year
  Sex: Male
  Weight: 68.5 kg

DRUGS (4)
  1. INCIVO [Suspect]
     Indication: CHRONIC HEPATITIS C
     Dosage: Dosage Form: Tablet
     Dates: start: 20120921, end: 20121005
  2. COPEGUS [Suspect]
     Indication: HEPATITIS C
     Dosage: Dosage Form: Unspecified, ^200mg dose^
     Route: 048
     Dates: start: 20120921, end: 20121005
  3. PEGASYS [Suspect]
     Indication: CHRONIC HEPATITIS C
     Dosage: Dosage Form: Unspecified
     Route: 058
  4. PARACETAMOL [Suspect]
     Indication: PRODUCT USED FOR UNKNOWN INDICATION
     Dosage: Dosage Form: Unspecified

REACTIONS (1)
  - Pancreatitis [Not Recovered/Not Resolved]
